FAERS Safety Report 23858577 (Version 3)
Quarter: 2024Q2

REPORT INFORMATION
  Report Type: Spontaneous
  Country: US (occurrence: US)
  Receive Date: 20240515
  Receipt Date: 20240624
  Transmission Date: 20240716
  Serious: No
  Sender: FDA-Public Use
  Company Number: US-PFIZER INC-202400106583

PATIENT
  Age: 13 Year
  Sex: Male

DRUGS (3)
  1. GENOTROPIN [Suspect]
     Active Substance: SOMATROPIN
     Indication: Growth hormone deficiency
     Dosage: 1.4MG DAILY
  2. GENOTROPIN [Suspect]
     Active Substance: SOMATROPIN
     Dosage: 1.4MG INJECTION ONCE A DAY, 6 NIGHTS A WEEK
     Dates: start: 20240329
  3. MESTINON [Concomitant]
     Active Substance: PYRIDOSTIGMINE BROMIDE
     Indication: Congenital myasthenic syndrome
     Dosage: 3.5 ML ORALLY EVERY 4 HOURS
     Route: 048

REACTIONS (5)
  - Foreign body in skin or subcutaneous tissue [Unknown]
  - Device breakage [Unknown]
  - Device mechanical issue [Unknown]
  - Device use issue [Unknown]
  - Drug dose omission by device [Unknown]
